FAERS Safety Report 19003668 (Version 3)
Quarter: 2022Q1

REPORT INFORMATION
  Report Type: Spontaneous
  Country: US (occurrence: US)
  Receive Date: 20210312
  Receipt Date: 20220112
  Transmission Date: 20220424
  Serious: Yes (Disabling)
  Sender: FDA-Public Use
  Company Number: US-AMERICAN REGENT INC-2021000603

PATIENT
  Age: 46 Year
  Sex: Male
  Weight: 68.481 kg

DRUGS (18)
  1. FERRIC CARBOXYMALTOSE [Suspect]
     Active Substance: FERRIC CARBOXYMALTOSE
     Indication: Iron deficiency anaemia
     Dosage: 750 MILLIGRAM, DILUTED IN 250 ML OF NS,SINGLE
     Route: 042
     Dates: start: 20190213, end: 20190213
  2. FERRIC CARBOXYMALTOSE [Suspect]
     Active Substance: FERRIC CARBOXYMALTOSE
     Dosage: 750 MILLIGRAM DILUTED IN 250 ML OF NS,, SINGLE
     Route: 042
     Dates: start: 20190220, end: 20190220
  3. FERRIC CARBOXYMALTOSE [Suspect]
     Active Substance: FERRIC CARBOXYMALTOSE
     Dosage: 750 MILLIGRAM DILUTED IN 250 ML OF NS,SINGLE
     Route: 042
     Dates: start: 20190405, end: 20190405
  4. FERRIC CARBOXYMALTOSE [Suspect]
     Active Substance: FERRIC CARBOXYMALTOSE
     Dosage: 750 MILLIGRAM DILUTED IN 250 ML OF NS, SINGLE
     Route: 042
     Dates: start: 20190412, end: 20190412
  5. CALCIUM [Concomitant]
     Active Substance: CALCIUM
     Indication: Product used for unknown indication
     Dosage: 4 TABLESPOON EVERY MORNING
     Route: 048
  6. ENTYVIO [Concomitant]
     Active Substance: VEDOLIZUMAB
     Indication: Crohn^s disease
     Dosage: 300 MILLIGRAM EVERY 8 WEEKS
     Route: 042
     Dates: start: 201702
  7. FOSAMAX [Concomitant]
     Active Substance: ALENDRONATE SODIUM
     Indication: Product used for unknown indication
     Dosage: 70 MILLIGRAM WEEKLY
     Route: 048
  8. MEDROL [Concomitant]
     Active Substance: METHYLPREDNISOLONE
     Indication: Product used for unknown indication
     Dosage: 4 MILLIGRAM, DOSE PACK AS DIRECTED
     Route: 065
  9. METHOTREXATE SODIUM [Concomitant]
     Active Substance: METHOTREXATE SODIUM
     Indication: Product used for unknown indication
     Dosage: 2.5 MILLIGRAM, 6 TABLET ONCE WEEKLY
     Route: 048
  10. CYANOCOBALAMIN\FOLIC ACID [Concomitant]
     Active Substance: CYANOCOBALAMIN\FOLIC ACID
     Indication: Product used for unknown indication
     Dosage: 500-400 MCG TABLET ONCE DAILY
     Route: 048
  11. VITAMIN D3 [Concomitant]
     Active Substance: CHOLECALCIFEROL
     Indication: Product used for unknown indication
     Dosage: 50000 INTERNATIONAL UNIT ONCE WEEKLY
     Route: 048
  12. QUESTRAN [Concomitant]
     Active Substance: CHOLESTYRAMINE
     Indication: Product used for unknown indication
     Dosage: ONE PACKET EVERY NIGHT AT BEDTIME
     Route: 048
  13. FLONASE                            /00972202/ [Concomitant]
     Indication: Rhinorrhoea
     Dosage: 50 MICROGRAM (2 SPRAYS IN EACH NOSTRIL)
  14. FLONASE                            /00972202/ [Concomitant]
     Indication: Nasal congestion
  15. FLONASE                            /00972202/ [Concomitant]
     Indication: Nasal pruritus
  16. FOLIC ACID [Concomitant]
     Active Substance: FOLIC ACID
     Indication: Product used for unknown indication
     Dosage: 1 MILLIGRAM, QD
     Route: 048
  17. FERROUS SULFATE [Concomitant]
     Active Substance: FERROUS SULFATE
     Indication: Product used for unknown indication
     Dosage: 325 MILLIGRAM QD
     Route: 048
  18. ANALPRAM-HC [Concomitant]
     Indication: Pain
     Dosage: 30 GRAM
     Route: 061

REACTIONS (11)
  - Gait disturbance [Not Recovered/Not Resolved]
  - Pain [Not Recovered/Not Resolved]
  - Myalgia [Not Recovered/Not Resolved]
  - Pain in extremity [Not Recovered/Not Resolved]
  - Osteomalacia [Not Recovered/Not Resolved]
  - Arthralgia [Not Recovered/Not Resolved]
  - Hypophosphataemia [Not Recovered/Not Resolved]
  - Emotional distress [Not Recovered/Not Resolved]
  - Anxiety [Not Recovered/Not Resolved]
  - Anhedonia [Not Recovered/Not Resolved]
  - Product quality issue [Unknown]

NARRATIVE: CASE EVENT DATE: 20190401
